FAERS Safety Report 8529501-1 (Version None)
Quarter: 2012Q3

REPORT INFORMATION
  Report Type: 
  Country: None (occurrence: None)
  Receive Date: 20120723
  Receipt Date: 20120628
  Transmission Date: 20120928
  Serious: Yes (Other)
  Sender: FDA-Public Use
  Company Number: JP-PFIZER INC-2012154964

PATIENT
  Age: 83 Year
  Sex: Female

DRUGS (2)
  1. CELEBREX [Concomitant]
  2. AZULFIDINE [Suspect]
     Indication: RHEUMATOID ARTHRITIS
     Dosage: 500 MG PER DAY
     Route: 048
     Dates: start: 20120507, end: 20120528

REACTIONS (2)
  - RHEUMATOID ARTHRITIS [None]
  - JOINT EFFUSION [None]
